FAERS Safety Report 9423303 (Version 1)
Quarter: 2013Q3

REPORT INFORMATION
  Report Type: Spontaneous
  Country: IT (occurrence: IT)
  Receive Date: 20130726
  Receipt Date: 20130726
  Transmission Date: 20140515
  Serious: Yes (Hospitalization)
  Sender: FDA-Public Use
  Company Number: IT-BAYER-2013-090872

PATIENT
  Age: 59 Year
  Sex: Male

DRUGS (1)
  1. ULTRAVIST [Suspect]
     Indication: COMPUTERISED TOMOGRAM
     Dosage: 125 ML, ONCE
     Route: 042
     Dates: start: 20130702, end: 20130702

REACTIONS (4)
  - Nausea [Unknown]
  - Face oedema [Unknown]
  - Blood pressure abnormal [Unknown]
  - Hyperhidrosis [Unknown]
